FAERS Safety Report 4415975-4 (Version None)
Quarter: 2004Q3

REPORT INFORMATION
  Report Type: 
  Country: None (occurrence: None)
  Receive Date: 20040802
  Receipt Date: 20040722
  Transmission Date: 20050211
  Serious: Yes (Hospitalization, Other)
  Sender: FDA-Public Use
  Company Number: 2002-03-0474

PATIENT
  Age: 61 Year
  Sex: Male
  Weight: 80 kg

DRUGS (22)
  1. REBETOL [Suspect]
     Indication: HEPATITIS C
     Dosage: 0.8-0.6 G QD* ORAL
     Route: 048
     Dates: start: 20020323, end: 20020514
  2. REBETOL [Suspect]
     Indication: HEPATITIS C
     Dosage: 0.8-0.6 G QD* ORAL
     Route: 048
     Dates: start: 20020117, end: 20020703
  3. REBETOL [Suspect]
     Indication: HEPATITIS C
     Dosage: 0.8-0.6 G QD* ORAL
     Route: 048
     Dates: start: 20020117, end: 20020703
  4. REBETOL [Suspect]
     Indication: HEPATITIS C
     Dosage: 0.8-0.6 G QD* ORAL
     Route: 048
     Dates: start: 20020515, end: 20020703
  5. INTRON A [Suspect]
     Indication: HEPATITIS C
     Dosage: 10 MU QD-TIW* INTRAMUSCULAR
     Route: 030
     Dates: start: 20020117, end: 20020130
  6. INTRON A [Suspect]
     Indication: HEPATITIS C
     Dosage: 10 MU QD-TIW* INTRAMUSCULAR
     Route: 030
     Dates: start: 20020117, end: 20020703
  7. INTRON A [Suspect]
     Indication: HEPATITIS C
     Dosage: 10 MU QD-TIW* INTRAMUSCULAR
     Route: 030
     Dates: start: 20020201, end: 20020703
  8. LOXOPROFEN SODIUM TABLETS [Suspect]
     Indication: PROPHYLAXIS
     Dosage: 3 TAB QD ORAL
     Route: 048
     Dates: start: 20020117, end: 20020601
  9. LOXOPROFEN SODIUM TABLETS [Suspect]
     Indication: PROPHYLAXIS
     Dosage: 3 TAB QD ORAL
     Route: 048
     Dates: start: 20020514
  10. . [Concomitant]
  11. PROHEPARUM [Concomitant]
  12. URSODEOXYCHOLIC ACID [Concomitant]
  13. SUCRALFATE [Concomitant]
  14. SEVEN-E [Concomitant]
  15. STREPTORAL [Concomitant]
  16. TAVEGYL TABLETS [Concomitant]
  17. BROTIZOLAM TABLETS [Concomitant]
  18. SULPIRIDE TABLETS [Concomitant]
  19. EURODIN TABLETS [Concomitant]
  20. DIGESTIVE ENZYME (NOS) [Concomitant]
  21. DOMPERIDONE [Concomitant]
  22. METOCLOPRAMIDE TABLETS [Concomitant]

REACTIONS (16)
  - ALANINE AMINOTRANSFERASE INCREASED [None]
  - ALOPECIA [None]
  - ANAEMIA [None]
  - ANOREXIA [None]
  - ASPARTATE AMINOTRANSFERASE INCREASED [None]
  - DEPRESSION [None]
  - HEADACHE [None]
  - LIVER DISORDER [None]
  - MALAISE [None]
  - NAUSEA [None]
  - PLATELET COUNT DECREASED [None]
  - PYREXIA [None]
  - STOMACH DISCOMFORT [None]
  - VOMITING [None]
  - WEIGHT DECREASED [None]
  - WHITE BLOOD CELL COUNT DECREASED [None]
